FAERS Safety Report 4426295-6 (Version None)
Quarter: 2004Q3

REPORT INFORMATION
  Report Type: 
  Country: None (occurrence: None)
  Receive Date: 20040811
  Receipt Date: 20040727
  Transmission Date: 20050211
  Serious: Yes (Hospitalization)
  Sender: FDA-Public Use
  Company Number: 193032

PATIENT
  Age: 30 Year
  Sex: Female
  Weight: 53 kg

DRUGS (3)
  1. AVONEX [Suspect]
     Indication: MULTIPLE SCLEROSIS
     Dosage: 30 MCG QW IM
     Route: 030
     Dates: start: 19970501, end: 20030901
  2. AVONEX [Suspect]
     Indication: MULTIPLE SCLEROSIS
     Dosage: 30 MCG QW IM
     Route: 030
     Dates: start: 20030901
  3. AVONEX [Suspect]
     Indication: MULTIPLE SCLEROSIS
     Dosage: 30 MCG QW IM
     Route: 030
     Dates: start: 20040224

REACTIONS (12)
  - ADENOVIRUS INFECTION [None]
  - ANXIETY [None]
  - ASTHENIA [None]
  - CARDIAC FAILURE [None]
  - EMOTIONAL DISTRESS [None]
  - HEADACHE [None]
  - MYOCARDITIS [None]
  - PALPITATIONS [None]
  - PARVOVIRUS INFECTION [None]
  - PULMONARY OEDEMA [None]
  - TACHYCARDIA [None]
  - VENTRICULAR HYPOKINESIA [None]
